FAERS Safety Report 9479325 (Version 1)
Quarter: 2013Q3

REPORT INFORMATION
  Report Type: Spontaneous
  Country: AU (occurrence: AU)
  Receive Date: 20130827
  Receipt Date: 20130827
  Transmission Date: 20140515
  Serious: Yes (Other)
  Sender: FDA-Public Use
  Company Number: AU-SPECTRUM PHARMACEUTICALS, INC.-13-F-AU-00225

PATIENT
  Age: 57 Year
  Sex: Male

DRUGS (4)
  1. FLUOROURACIL [Suspect]
     Indication: COLORECTAL CANCER STAGE III
     Dosage: 1170 MG, OVER 48HRS
     Route: 042
  2. FLUOROURACIL [Suspect]
     Dosage: 780 MG, BOLUS ON DAY 1
     Route: 042
  3. OXALIPLATIN [Suspect]
     Indication: COLORECTAL CANCER STAGE III
     Dosage: 165 MG, DAY 1
     Route: 042
  4. LEUCOVORIN /00566701/ [Suspect]
     Indication: COLORECTAL CANCER STAGE III
     Dosage: 390 MG, DAY 1 + 2
     Route: 042

REACTIONS (2)
  - Papilloedema [Recovered/Resolved]
  - Optic neuropathy [Recovered/Resolved]
